FAERS Safety Report 19972755 (Version 1)
Quarter: 2021Q4

REPORT INFORMATION
  Report Type: Spontaneous
  Country: US (occurrence: US)
  Receive Date: 20211019
  Receipt Date: 20211019
  Transmission Date: 20220304
  Serious: Yes (Other)
  Sender: FDA-Public Use
  Company Number: None

PATIENT
  Age: 31 Year
  Sex: Male
  Weight: 86.72 kg

DRUGS (2)
  1. RISPERIDONE [Suspect]
     Active Substance: RISPERIDONE
     Route: 048
     Dates: start: 20210420, end: 20210601
  2. HALOPERIDOL [Concomitant]
     Active Substance: HALOPERIDOL

REACTIONS (2)
  - Gynaecomastia [None]
  - Blood prolactin increased [None]

NARRATIVE: CASE EVENT DATE: 20210512
